FAERS Safety Report 9578242 (Version 1)
Quarter: 2013Q4

REPORT INFORMATION
  Report Type: Spontaneous
  Country: US (occurrence: US)
  Receive Date: 20131001
  Receipt Date: 20131001
  Transmission Date: 20140711
  Serious: No
  Sender: FDA-Public Use
  Company Number: US-AMGEN-USASP2013011913

PATIENT
  Sex: Female

DRUGS (8)
  1. ENBREL [Suspect]
     Indication: RHEUMATOID ARTHRITIS
     Dosage: 50 MG, QWK
     Route: 058
  2. NEXIUM                             /01479302/ [Concomitant]
     Dosage: 40 MG, UNK
     Route: 048
  3. SYMBYAX [Concomitant]
     Dosage: 3-25 MG, UNK
  4. DIOVAN HCT [Concomitant]
     Dosage: 320-12.5 MG, UNK
     Route: 048
  5. METOPROLOL/HCTZ [Concomitant]
     Dosage: 100-500 MG, UNK
     Route: 048
  6. FOLBIC [Concomitant]
     Dosage: UNK
     Route: 048
  7. WARFARIN [Concomitant]
     Dosage: 3 MG, UNK
     Route: 048
  8. IMIPRAMINE PAMOATE [Concomitant]
     Dosage: 150 MG, UNK
     Route: 048

REACTIONS (1)
  - Infection [Unknown]
